FAERS Safety Report 7383089-X (Version None)
Quarter: 2011Q1

REPORT INFORMATION
  Report Type: 
  Country: None (occurrence: None)
  Receive Date: 20110330
  Receipt Date: 20110326
  Transmission Date: 20110831
  Serious: No
  Sender: FDA-Public Use
  Company Number: US-PFIZER INC-2011067642

PATIENT
  Sex: Female
  Weight: 77.098 kg

DRUGS (1)
  1. NICOTROL [Suspect]
     Indication: SMOKING CESSATION THERAPY
     Dosage: 10 MG, DAILY
     Dates: start: 20110315, end: 20110321

REACTIONS (2)
  - GLOSSITIS [None]
  - STOMATITIS [None]
